FAERS Safety Report 6552591-2 (Version None)
Quarter: 2010Q1

REPORT INFORMATION
  Report Type: 
  Country: None (occurrence: None)
  Receive Date: 20100126
  Receipt Date: 20100120
  Transmission Date: 20100710
  Serious: Yes (Hospitalization)
  Sender: FDA-Public Use
  Company Number: FR-WYE-G05382110

PATIENT
  Age: 76 Year
  Sex: Female

DRUGS (9)
  1. EFFEXOR [Suspect]
     Indication: DEPRESSION
     Route: 048
     Dates: end: 20090914
  2. CARDENSIEL [Concomitant]
     Dosage: UNKNOWN
  3. DIGOXIN [Concomitant]
     Dosage: UNKNOWN
  4. PROCTOLOG [Concomitant]
     Dosage: UNKNOWN
  5. PARIET [Concomitant]
     Dosage: UNKNOWN
  6. DOMPERIDONE [Concomitant]
     Dosage: UNKNOWN
  7. FORLAX [Concomitant]
     Dosage: UNKNOWN
  8. PREVISCAN [Concomitant]
     Dosage: UNKNOWN
  9. CRESTOR [Concomitant]
     Dosage: UNKNOWN

REACTIONS (7)
  - ALTERED STATE OF CONSCIOUSNESS [None]
  - CONFUSIONAL STATE [None]
  - DISTURBANCE IN ATTENTION [None]
  - FALL [None]
  - INAPPROPRIATE ANTIDIURETIC HORMONE SECRETION [None]
  - INFLAMMATION [None]
  - MALAISE [None]
